FAERS Safety Report 10558030 (Version 2)
Quarter: 2014Q4

REPORT INFORMATION
  Report Type: Spontaneous
  Country: BR (occurrence: BR)
  Receive Date: 20141031
  Receipt Date: 20141114
  Transmission Date: 20150529
  Serious: Yes (Other)
  Sender: FDA-Public Use
  Company Number: PHHY2014BR142428

PATIENT
  Age: 46 Year
  Sex: Female

DRUGS (1)
  1. FORASEQ [Suspect]
     Active Substance: BUDESONIDE\FORMOTEROL FUMARATE
     Indication: BRONCHITIS
     Dosage: 1 DF, BID (1 CAPSULE OF EACH TREATMENT TWICE A DAY)
     Route: 055

REACTIONS (2)
  - Fatigue [Recovering/Resolving]
  - Benign ovarian tumour [Recovered/Resolved]
